FAERS Safety Report 8506336-7 (Version None)
Quarter: 2012Q3

REPORT INFORMATION
  Report Type: 
  Country: None (occurrence: None)
  Receive Date: 20120712
  Receipt Date: 20111221
  Transmission Date: 20120928
  Serious: Yes (Death, Hospitalization)
  Sender: FDA-Public Use
  Company Number: US-ROCHE-1086196

PATIENT
  Sex: Female

DRUGS (22)
  1. PROZAC [Concomitant]
  2. FLONASE [Concomitant]
     Dosage: ONE INHALATION  (50UG) DAILY
  3. ZYRTEC [Concomitant]
  4. WELLBUTRIN [Concomitant]
  5. RECLAST [Concomitant]
     Dosage: 5MG/100 CUBIC CENTIMETERS
  6. CALCIUM [Concomitant]
  7. PLAQUENIL [Concomitant]
     Route: 048
  8. WELLBUTRIN [Concomitant]
     Dosage: MEDICATION AT TIME OF TRANSFER
  9. ACTEMRA [Suspect]
     Indication: RHEUMATOID ARTHRITIS
     Route: 042
     Dates: start: 20101210, end: 20110831
  10. LEUCOVORIN CALCIUM [Concomitant]
     Dosage: 5 MG WEEKLY AFTER METHOTREXATE
  11. SPIRIVA [Concomitant]
     Dosage: ONE INHALATION EVERY MORNING
  12. METHOTREXATE [Concomitant]
  13. FOLIC ACID [Concomitant]
  14. FISH OIL [Concomitant]
  15. TOPAMAX [Concomitant]
     Route: 048
  16. VITAMIN E [Concomitant]
     Dosage: 1000 UNITS DAILY
     Route: 048
  17. RELPAX [Concomitant]
     Route: 048
  18. XOPENEX [Concomitant]
     Dosage: DOSE: 2 PUFFS
  19. ZOCOR [Concomitant]
     Route: 048
  20. NEXIUM [Concomitant]
  21. ASMANEX TWISTHALER [Concomitant]
     Dosage: 2 INHALATIONS OF 220UG
  22. INDERAL [Concomitant]

REACTIONS (8)
  - CONCUSSION [None]
  - FALL [None]
  - DEATH [None]
  - ATAXIA [None]
  - EXCORIATION [None]
  - OEDEMA PERIPHERAL [None]
  - CRANIOCEREBRAL INJURY [None]
  - CELLULITIS [None]
